FAERS Safety Report 5977111-2 (Version None)
Quarter: 2008Q4

REPORT INFORMATION
  Report Type: 
  Country: None (occurrence: None)
  Receive Date: 20081202
  Receipt Date: 20081202
  Transmission Date: 20090506
  Serious: Yes (Life-Threatening, Hospitalization)
  Sender: FDA-Public Use
  Company Number: None

PATIENT
  Age: 29 Year
  Sex: Female
  Weight: 62.1428 kg

DRUGS (2)
  1. DEPAKOTE [Suspect]
     Indication: ATTENTION DEFICIT/HYPERACTIVITY DISORDER
     Dosage: 500MG TWICE DAILY PO
     Route: 048
     Dates: start: 20081006, end: 20081019
  2. DEPAKOTE [Suspect]
     Indication: BIPOLAR DISORDER
     Dosage: 500MG TWICE DAILY PO
     Route: 048
     Dates: start: 20081006, end: 20081019

REACTIONS (5)
  - AMNESIA [None]
  - CONFUSIONAL STATE [None]
  - HEPATIC FAILURE [None]
  - OVERDOSE [None]
  - STUPOR [None]
